FAERS Safety Report 9802723 (Version 1)
Quarter: 2014Q1

REPORT INFORMATION
  Report Type: Spontaneous
  Country: US (occurrence: US)
  Receive Date: 20140108
  Receipt Date: 20140108
  Transmission Date: 20141002
  Serious: No
  Sender: FDA-Public Use
  Company Number: US-009507513-1312USA009314

PATIENT
  Age: 82 Year
  Sex: Male

DRUGS (2)
  1. COZAAR [Suspect]
     Indication: BLOOD PRESSURE INCREASED
     Route: 048
  2. METOPROLOL TARTRATE [Suspect]
     Indication: BLOOD PRESSURE INCREASED

REACTIONS (1)
  - Blood pressure decreased [Unknown]
